FAERS Safety Report 5341139-6 (Version None)
Quarter: 2007Q2

REPORT INFORMATION
  Report Type: 
  Country: None (occurrence: None)
  Receive Date: 20070405
  Receipt Date: 20060925
  Transmission Date: 20071010
  Serious: Yes (Hospitalization)
  Sender: FDA-Public Use
  Company Number: 2006P1000445

PATIENT
  Age: 16 Year
  Sex: Female
  Weight: 39 kg

DRUGS (2)
  1. BUSULFAN (BUSULFAN) [Suspect]
     Indication: B-CELL TYPE ACUTE LEUKAEMIA
     Dosage: SEE IMAGE
     Route: 042
  2. PHENYTOIN [Concomitant]

REACTIONS (1)
  - CONVULSION [None]
